FAERS Safety Report 6219751-1 (Version None)
Quarter: 2009Q2

REPORT INFORMATION
  Report Type: 
  Country: None (occurrence: None)
  Receive Date: 20090609
  Receipt Date: 20090526
  Transmission Date: 20091009
  Serious: Yes (Hospitalization, Congenital Anomaly, Other)
  Sender: FDA-Public Use
  Company Number: A0686003A

PATIENT
  Sex: Female
  Weight: 4 kg

DRUGS (10)
  1. PAXIL CR [Suspect]
     Indication: DEPRESSION
     Dosage: 25MG PER DAY
     Dates: start: 20030101
  2. IMITREX [Concomitant]
  3. SINGULAIR [Concomitant]
  4. PROPOXYPHENE HCL CAP [Concomitant]
     Dates: start: 20030710
  5. PROMETHAZINE [Concomitant]
     Dates: start: 20030813
  6. VITAMIN TAB [Concomitant]
  7. DARVOCET [Concomitant]
  8. ASPIRIN [Concomitant]
  9. PHENERGAN [Concomitant]
  10. EFFEXOR [Concomitant]
     Dates: end: 20030701

REACTIONS (13)
  - ATRIAL SEPTAL DEFECT [None]
  - CARDIAC FAILURE CONGESTIVE [None]
  - CARDIAC MURMUR [None]
  - CARDIOMEGALY [None]
  - CONGENITAL ANOMALY [None]
  - DILATATION VENTRICULAR [None]
  - DRUG EXPOSURE DURING PREGNANCY [None]
  - FAILURE TO THRIVE [None]
  - HYPERHIDROSIS [None]
  - PULMONARY OEDEMA [None]
  - TACHYPNOEA [None]
  - VENTRICULAR SEPTAL DEFECT [None]
  - WEIGHT GAIN POOR [None]
